FAERS Safety Report 6978077-9 (Version None)
Quarter: 2010Q3

REPORT INFORMATION
  Report Type: 
  Country: None (occurrence: None)
  Receive Date: 20100913
  Receipt Date: 20100902
  Transmission Date: 20110219
  Serious: No
  Sender: FDA-Public Use
  Company Number: US-JNJFOC-20100901499

PATIENT
  Sex: Female
  Weight: 69.85 kg

DRUGS (12)
  1. FENTANYL CITRATE [Suspect]
     Indication: PAIN
     Route: 062
  2. FENTANYL CITRATE [Suspect]
     Route: 062
  3. XANAX [Concomitant]
     Indication: TREMOR
     Route: 048
  4. SKELAXIN [Concomitant]
     Indication: MYALGIA
     Route: 048
  5. HYDROCODONE BITARTRATE [Concomitant]
     Indication: PAIN
     Route: 048
  6. CYMBALTA [Concomitant]
     Indication: DEPRESSION
     Route: 048
  7. CELEXA [Concomitant]
     Indication: DEPRESSION
  8. TRAZODONE HCL [Concomitant]
     Indication: SLEEP DISORDER
     Route: 048
  9. RESTORIL [Concomitant]
     Indication: INSOMNIA
     Route: 048
  10. TOPROL-XL [Concomitant]
     Indication: HYPERTENSION
     Dosage: 25-50 MG AS NEEDED
     Route: 048
  11. FENOFIBRIC ACID [Concomitant]
     Indication: BLOOD CHOLESTEROL INCREASED
     Route: 048
  12. MOTRIN [Concomitant]
     Indication: PAIN
     Route: 048

REACTIONS (4)
  - ABDOMINAL DISCOMFORT [None]
  - APPLICATION SITE REACTION [None]
  - NIGHT SWEATS [None]
  - WRONG TECHNIQUE IN DRUG USAGE PROCESS [None]
